FAERS Safety Report 4425270-5 (Version None)
Quarter: 2004Q3

REPORT INFORMATION
  Report Type: 
  Country: None (occurrence: None)
  Receive Date: 20040813
  Receipt Date: 20040802
  Transmission Date: 20050211
  Serious: Yes (Other)
  Sender: FDA-Public Use
  Company Number: US-BRISTOL-MYERS SQUIBB COMPANY-12658035

PATIENT
  Age: 24 Year
  Sex: Female

DRUGS (9)
  1. CEFEPIME FOR INJ [Suspect]
     Indication: TUBO-OVARIAN ABSCESS
     Route: 042
  2. METRONIDAZOLE [Suspect]
     Indication: TUBO-OVARIAN ABSCESS
     Route: 048
  3. SULBACTAM + AMPICILLIN [Concomitant]
     Indication: TUBO-OVARIAN ABSCESS
     Route: 042
  4. PREDNISONE [Concomitant]
  5. NEPHROCAPS [Concomitant]
  6. CALCIUM CARBONATE [Concomitant]
  7. NIFEDIPINE [Concomitant]
  8. ATENOLOL [Concomitant]
  9. CLONIDINE HCL [Concomitant]

REACTIONS (1)
  - PSEUDOPORPHYRIA [None]
